FAERS Safety Report 4602295-8 (Version None)
Quarter: 2005Q2

REPORT INFORMATION
  Report Type: 
  Country: None (occurrence: None)
  Receive Date: 20050215
  Receipt Date: 20041026
  Transmission Date: 20051028
  Serious: Yes (Other)
  Sender: FDA-Public Use
  Company Number: 379414

PATIENT
  Age: 56 Year
  Sex: Male

DRUGS (4)
  1. PEGASYS [Suspect]
     Dosage: OTHER
     Dates: start: 20040525
  2. REBETOL [Suspect]
     Dosage: ORAL
     Route: 048
     Dates: start: 20040525, end: 20040621
  3. WELLBUTRIN [Concomitant]
  4. TRAZODONE HCL [Concomitant]

REACTIONS (10)
  - ABDOMINAL PAIN [None]
  - ARTHRALGIA [None]
  - DYSPNOEA [None]
  - FATIGUE [None]
  - GROIN PAIN [None]
  - HYPOTRICHOSIS [None]
  - MYOCARDIAL INFARCTION [None]
  - PAIN [None]
  - TESTICULAR PAIN [None]
  - WHITE BLOOD CELL COUNT DECREASED [None]
